FAERS Safety Report 9068064 (Version 1)
Quarter: 2013Q1

REPORT INFORMATION
  Report Type: Spontaneous
  Country: US (occurrence: US)
  Receive Date: 20130215
  Receipt Date: 20130215
  Transmission Date: 20140127
  Serious: No
  Sender: FDA-Public Use
  Company Number: US-BIOGENIDEC-2013BI013004

PATIENT
  Age: 52 Year
  Sex: Female

DRUGS (1)
  1. TYSABRI [Suspect]
     Indication: MULTIPLE SCLEROSIS
     Route: 042
     Dates: start: 20110426

REACTIONS (6)
  - Fall [Recovered/Resolved]
  - Bone contusion [Recovered/Resolved]
  - Mood swings [Not Recovered/Not Resolved]
  - Weight increased [Not Recovered/Not Resolved]
  - Premature menopause [Not Recovered/Not Resolved]
  - Fatigue [Not Recovered/Not Resolved]
